FAERS Safety Report 5108587-0 (Version None)
Quarter: 2006Q3

REPORT INFORMATION
  Report Type: 
  Country: None (occurrence: None)
  Receive Date: 20060915
  Receipt Date: 20060906
  Transmission Date: 20061208
  Serious: Yes (Death, Hospitalization)
  Sender: FDA-Public Use
  Company Number: 2006-01937

PATIENT
  Age: 56 Year
  Sex: Male
  Weight: 60 kg

DRUGS (5)
  1. VELCADE [Suspect]
     Indication: MULTIPLE MYELOMA
     Dosage: 1.00 MG/M2, INTRAVENOUS
     Route: 042
     Dates: start: 20060720, end: 20060725
  2. VALACYCLOVIR [Concomitant]
  3. DECTANCYL (DEXAMETHASONE ACETATE) [Concomitant]
  4. RENAGEL [Concomitant]
  5. BACTRIM DS [Concomitant]

REACTIONS (3)
  - BRAIN SCAN ABNORMAL [None]
  - HAEMODIALYSIS [None]
  - ISCHAEMIC STROKE [None]
